FAERS Safety Report 6732656-2 (Version None)
Quarter: 2010Q2

REPORT INFORMATION
  Report Type: 
  Country: None (occurrence: None)
  Receive Date: 20100519
  Receipt Date: 20100510
  Transmission Date: 20101027
  Serious: Yes (Death)
  Sender: FDA-Public Use
  Company Number: NL-AMGEN-QUU412433

PATIENT
  Age: 55 Year
  Sex: Male

DRUGS (6)
  1. ENBREL [Suspect]
     Indication: RHEUMATOID ARTHRITIS
     Route: 058
     Dates: start: 20070403
  2. HUMIRA [Suspect]
     Route: 058
     Dates: start: 20050615, end: 20070402
  3. MABTHERA [Concomitant]
     Dosage: TWICE, DOSE UNKNOWN
     Route: 042
     Dates: start: 20070817, end: 20070817
  4. MABTHERA [Concomitant]
     Dosage: TWICE, DOSE UNKNOWN
     Route: 042
     Dates: start: 20080201, end: 20080201
  5. MABTHERA [Concomitant]
     Dosage: TWICE, DOSE UNKNOWN
     Route: 042
     Dates: start: 20081010, end: 20081010
  6. MABTHERA [Concomitant]
     Dosage: TWICE, DOSE UNKNOWN
     Route: 042
     Dates: start: 20090907, end: 20090907

REACTIONS (1)
  - LUNG CANCER METASTATIC [None]
